FAERS Safety Report 9434170 (Version 1)
Quarter: 2013Q3

REPORT INFORMATION
  Report Type: Report from Study
  Country: DK (occurrence: DK)
  Receive Date: 20130801
  Receipt Date: 20130801
  Transmission Date: 20140515
  Serious: Yes (Other)
  Sender: FDA-Public Use
  Company Number: DK-ROCHE-1252716

PATIENT
  Sex: 0

DRUGS (2)
  1. CAPECITABINE [Suspect]
     Indication: COLORECTAL CANCER
     Dosage: 1250 MG X M-2
     Route: 065
  2. OXALIPLATIN [Suspect]
     Indication: COLORECTAL CANCER
     Dosage: 130 MG X M-2 ON DAY ONE
     Route: 065

REACTIONS (13)
  - Palmar-plantar erythrodysaesthesia syndrome [Unknown]
  - Myocardial ischaemia [Unknown]
  - Thrombocytopenia [Unknown]
  - Infection [Unknown]
  - Mucosal inflammation [Unknown]
  - Anaemia [Unknown]
  - Leukopenia [Unknown]
  - Nausea [Unknown]
  - Vomiting [Unknown]
  - Diarrhoea [Unknown]
  - Fatigue [Unknown]
  - Pain [Unknown]
  - Peripheral sensory neuropathy [Unknown]
